FAERS Safety Report 5313583-4 (Version None)
Quarter: 2007Q2

REPORT INFORMATION
  Report Type: 
  Country: None (occurrence: None)
  Receive Date: 20070425
  Receipt Date: 20070410
  Transmission Date: 20071010
  Serious: Yes (Other)
  Sender: FDA-Public Use
  Company Number: FSC_0091_2007

PATIENT
  Age: 71 Year
  Sex: Male
  Weight: 56 kg

DRUGS (1)
  1. VERAPAMIL [Suspect]
     Indication: HYPERTENSION
     Dosage: 240 MG QD ORAL
     Route: 048
     Dates: start: 19951023, end: 20060401

REACTIONS (2)
  - HYPERTONIA [None]
  - HYPOKINESIA [None]
